FAERS Safety Report 8775565 (Version 1)
Quarter: 2012Q4

REPORT INFORMATION
  Report Type: 
  Country: KE (occurrence: KE)
  Receive Date: 20120910
  Receipt Date: 20120910
  Transmission Date: 20130627
  Serious: Yes (Death, Other)
  Sender: FDA-Public Use
  Company Number: PHHY2005KE007368

PATIENT
  Sex: Male

DRUGS (1)
  1. GLIVEC [Suspect]
     Dates: start: 20041027

REACTIONS (2)
  - Death [Fatal]
  - Thrombocytopenia [Unknown]
